FAERS Safety Report 17805922 (Version 3)
Quarter: 2020Q3

REPORT INFORMATION
  Report Type: Report from Study
  Country: US (occurrence: US)
  Receive Date: 20200519
  Receipt Date: 20200821
  Transmission Date: 20201102
  Serious: No
  Sender: FDA-Public Use
  Company Number: US-AMGEN-USASL2020077769

PATIENT
  Age: 64 Year
  Sex: Female

DRUGS (1)
  1. ENBREL [Suspect]
     Active Substance: ETANERCEPT
     Indication: RHEUMATOID ARTHRITIS
     Dosage: 50 MILLIGRAM, QWK
     Route: 065

REACTIONS (6)
  - Pain [Unknown]
  - Reading disorder [Unknown]
  - Device use error [Unknown]
  - Device malfunction [Unknown]
  - Device power source issue [Unknown]
  - Product storage error [Unknown]

NARRATIVE: CASE EVENT DATE: 2020
